FAERS Safety Report 13693602 (Version 1)
Quarter: 2017Q2

REPORT INFORMATION
  Report Type: Spontaneous
  Country: CA (occurrence: CA)
  Receive Date: 20170627
  Receipt Date: 20170627
  Transmission Date: 20170830
  Serious: Yes (Hospitalization)
  Sender: FDA-Public Use
  Company Number: CA-TEVA-780902ACC

PATIENT
  Age: 64 Year
  Sex: Female
  Weight: 78 kg

DRUGS (3)
  1. WARFARIN [Suspect]
     Active Substance: WARFARIN
     Dosage: 6 MILLIGRAM DAILY;
     Route: 048
  2. CALCIUM [Concomitant]
     Active Substance: CALCIUM
  3. PHOSPHORE [Concomitant]

REACTIONS (3)
  - Abdominal wall wound [Recovered/Resolved]
  - Skin lesion [Recovered/Resolved]
  - Vascular calcification [Recovered/Resolved]
